FAERS Safety Report 16890805 (Version 1)
Quarter: 2019Q4

REPORT INFORMATION
  Report Type: Spontaneous
  Country: US (occurrence: US)
  Receive Date: 20191005
  Receipt Date: 20191005
  Transmission Date: 20200122
  Serious: Yes (Disabling, Other)
  Sender: FDA-Public Use
  Company Number: None

PATIENT
  Age: 55 Year
  Sex: Female
  Weight: 119.25 kg

DRUGS (5)
  1. COD LIVER OIL [Concomitant]
     Active Substance: COD LIVER OIL
  2. ATORVASTATIN 40MG [Concomitant]
     Active Substance: ATORVASTATIN
  3. AMLODIPINE [Concomitant]
     Active Substance: AMLODIPINE BESYLATE
  4. TOVIAZ [Suspect]
     Active Substance: FESOTERODINE FUMARATE
     Indication: INCONTINENCE
     Dosage: ?          QUANTITY:30 TABLET(S);?
     Route: 048
     Dates: start: 20191003, end: 20191004
  5. INVEGA 6MG [Concomitant]

REACTIONS (3)
  - Wound [None]
  - Back pain [None]
  - Hypoaesthesia [None]

NARRATIVE: CASE EVENT DATE: 20191003
